FAERS Safety Report 13258380 (Version 1)
Quarter: 2017Q1

REPORT INFORMATION
  Report Type: Other
  Country: DE (occurrence: DE)
  Receive Date: 20170222
  Receipt Date: 20170222
  Transmission Date: 20170428
  Serious: Yes (Other)
  Sender: FDA-Public Use
  Company Number: DE-MACLEODS PHARMACEUTICALS US LTD-MAC2017004349

PATIENT

DRUGS (1)
  1. LEVOFLOXACIN MACLEODS 500 MG FILMTABLETTEN [Suspect]
     Active Substance: LEVOFLOXACIN
     Indication: PRODUCT USED FOR UNKNOWN INDICATION
     Dosage: 500 MG, EVERY DAY (A TOTAL OF 2 TABLETS)
     Route: 048
     Dates: start: 20161114, end: 20161117

REACTIONS (2)
  - Vitreous detachment [Not Recovered/Not Resolved]
  - Tinnitus [Not Recovered/Not Resolved]
